FAERS Safety Report 17947053 (Version 1)
Quarter: 2020Q2

REPORT INFORMATION
  Report Type: Spontaneous
  Country: US (occurrence: US)
  Receive Date: 20200625
  Receipt Date: 20200625
  Transmission Date: 20200714
  Serious: Yes (Other)
  Sender: FDA-Public Use
  Company Number: US-PFIZER INC-2020245052

PATIENT
  Sex: Female

DRUGS (1)
  1. CORTEF [Suspect]
     Active Substance: HYDROCORTISONE
     Indication: CORTISOL DEFICIENCY
     Dosage: 30 MG, DAILY (10MG, AND THEN SHE TAKES 5MG 1-2 TIMES A DAY AS NEEDED)

REACTIONS (1)
  - Drug dependence [Unknown]
